FAERS Safety Report 11492535 (Version 1)
Quarter: 2015Q3

REPORT INFORMATION
  Report Type: Spontaneous
  Country: US (occurrence: None)
  Receive Date: 20150910
  Receipt Date: 20150910
  Transmission Date: 20151125
  Serious: No
  Sender: FDA-Public Use
  Company Number: None

PATIENT
  Age: 60 Year
  Sex: Female
  Weight: 135 kg

DRUGS (20)
  1. MONTELUKAST [Concomitant]
     Active Substance: MONTELUKAST SODIUM
  2. FUROSEMIDE. [Concomitant]
     Active Substance: FUROSEMIDE
  3. ISOSOBIDE [Concomitant]
  4. OMERAZOLE [Concomitant]
     Active Substance: OMEPRAZOLE
  5. BACLOFEN. [Concomitant]
     Active Substance: BACLOFEN
  6. PROZAC [Suspect]
     Active Substance: FLUOXETINE HYDROCHLORIDE
  7. HYDROXZINE [Concomitant]
  8. ACETAMINOPHEN. [Concomitant]
     Active Substance: ACETAMINOPHEN
  9. RANITIDINE [Concomitant]
     Active Substance: RANITIDINE\RANITIDINE HYDROCHLORIDE
  10. HYDROCCODONE-APAP [Concomitant]
  11. VITAMIN D3 [Concomitant]
     Active Substance: CHOLECALCIFEROL
  12. POTASSIUM [Concomitant]
     Active Substance: POTASSIUM
  13. FENBFIBRATE [Concomitant]
  14. RELACORE [Concomitant]
  15. IRPRPSODPME [Concomitant]
  16. CETIZINC [Concomitant]
  17. LISINOPRIL. [Concomitant]
     Active Substance: LISINOPRIL
  18. PRAVASTATIN [Concomitant]
     Active Substance: PRAVASTATIN\PRAVASTATIN SODIUM
  19. CYMBALTA [Suspect]
     Active Substance: DULOXETINE HYDROCHLORIDE
     Indication: DEPRESSION
     Route: 048
     Dates: start: 20150714, end: 20150809
  20. ASPIRIN. [Concomitant]
     Active Substance: ASPIRIN

REACTIONS (11)
  - Victim of abuse [None]
  - Hallucinations, mixed [None]
  - Abnormal behaviour [None]
  - Musculoskeletal stiffness [None]
  - Anger [None]
  - Arthralgia [None]
  - Rash [None]
  - Bite [None]
  - Headache [None]
  - Skin sensitisation [None]
  - Vomiting [None]

NARRATIVE: CASE EVENT DATE: 20150713
